FAERS Safety Report 10271695 (Version 1)
Quarter: 2014Q3

REPORT INFORMATION
  Report Type: Spontaneous
  Country: US (occurrence: US)
  Receive Date: 20140701
  Receipt Date: 20140701
  Transmission Date: 20150326
  Serious: No
  Sender: FDA-Public Use
  Company Number: US-SA-2013SA135648

PATIENT
  Age: 41 Year
  Sex: Female

DRUGS (14)
  1. CYMBALTA [Concomitant]
     Active Substance: DULOXETINE HYDROCHLORIDE
  2. LYRICA [Concomitant]
     Active Substance: PREGABALIN
  3. ASA [Concomitant]
     Active Substance: ASPIRIN
  4. ESTRADIOL. [Concomitant]
     Active Substance: ESTRADIOL
  5. IBANDRONIC ACID [Concomitant]
     Active Substance: IBANDRONIC ACID
  6. IRON [Concomitant]
     Active Substance: IRON
  7. LISINOPRIL. [Concomitant]
     Active Substance: LISINOPRIL
  8. NEURONTIN [Concomitant]
     Active Substance: GABAPENTIN
  9. CEREZYME [Suspect]
     Active Substance: IMIGLUCERASE
     Indication: GAUCHER^S DISEASE
     Dosage: DOSE:36 UNIT(S)
     Route: 042
  10. VITAMIN D [Concomitant]
     Active Substance: CHOLECALCIFEROL
     Dosage: DOSE:50000 UNIT(S)
  11. CEREZYME [Suspect]
     Active Substance: IMIGLUCERASE
     Indication: GAUCHER^S DISEASE
     Dosage: DOSE:4980 UNIT(S)
     Route: 042
     Dates: start: 20121211
  12. CALCIUM [Concomitant]
     Active Substance: CALCIUM
  13. REQUIP [Concomitant]
     Active Substance: ROPINIROLE HYDROCHLORIDE
  14. AMLODIPINE [Concomitant]
     Active Substance: AMLODIPINE BESYLATE

REACTIONS (2)
  - Abdominal pain upper [Recovered/Resolved]
  - Headache [Not Recovered/Not Resolved]

NARRATIVE: CASE EVENT DATE: 20131116
